FAERS Safety Report 8430028 (Version 3)
Quarter: 2013Q3

REPORT INFORMATION
  Report Type: Report from Study
  Country: SE (occurrence: SE)
  Receive Date: 20120228
  Receipt Date: 20130719
  Transmission Date: 20140515
  Serious: Yes (Hospitalization, Other)
  Sender: FDA-Public Use
  Company Number: SE-BRISTOL-MYERS SQUIBB COMPANY-15678352

PATIENT
  Age: 77 Year
  Sex: Male

DRUGS (8)
  1. SAXAGLIPTIN [Suspect]
     Indication: TYPE 2 DIABETES MELLITUS
     Dosage: INTERRUPTED ON 12APR11 RESTARTED ON 03MAY11-17JAN13
     Dates: start: 20110126
  2. METFORMIN HCL [Suspect]
     Indication: DIABETES MELLITUS
     Dosage: BEFORE RANDOMIZATION-08FEB11: 1500MG
     Dates: start: 20110208
  3. NOVOMIX [Suspect]
     Indication: DIABETES MELLITUS
     Dosage: BEFORE RANDOMIZATION-08FEB11;20IU,09FEB11-ONG;14IU/UNITS
  4. BEHEPAN [Concomitant]
     Indication: VITAMIN B12 DEFICIENCY
     Route: 048
  5. WARAN [Concomitant]
     Indication: COAGULOPATHY
     Route: 048
  6. OMEPRAZOL [Concomitant]
     Indication: GASTRITIS
     Route: 048
  7. PREDNISOLONE [Concomitant]
     Indication: ARTHRITIS REACTIVE
     Route: 048
     Dates: start: 20110420
  8. DOXYFERM [Concomitant]
     Indication: COUGH
     Route: 048
     Dates: start: 20110414, end: 20110424

REACTIONS (2)
  - Erysipelas [Recovered/Resolved]
  - Oesophageal candidiasis [Recovered/Resolved]
